FAERS Safety Report 10890591 (Version 1)
Quarter: 2015Q1

REPORT INFORMATION
  Report Type: Spontaneous
  Country: US (occurrence: US)
  Receive Date: 20150305
  Receipt Date: 20150305
  Transmission Date: 20150721
  Serious: Yes (Hospitalization, Other)
  Sender: FDA-Public Use
  Company Number: US-AMGEN-USASP2015018712

PATIENT
  Age: 39 Year
  Sex: Male

DRUGS (2)
  1. SENSIPAR [Suspect]
     Active Substance: CINACALCET HYDROCHLORIDE
     Indication: HYPERPARATHYROIDISM PRIMARY
     Dosage: 180 MG, QD
     Route: 065
  2. XGEVA [Suspect]
     Active Substance: DENOSUMAB
     Indication: HYPERCALCAEMIA
     Dosage: 60 MG, QMO
     Route: 065

REACTIONS (6)
  - Pulmonary mass [Unknown]
  - Metastasis [Unknown]
  - Hypocalcaemia [Recovered/Resolved]
  - Thyroid neoplasm [Unknown]
  - Hungry bone syndrome [Unknown]
  - Hypercalcaemia [Recovered/Resolved]
